FAERS Safety Report 9313579 (Version 1)
Quarter: 2013Q2

REPORT INFORMATION
  Report Type: Report from Study
  Country: US (occurrence: US)
  Receive Date: 20130528
  Receipt Date: 20130528
  Transmission Date: 20140414
  Serious: Yes (Other)
  Sender: FDA-Public Use
  Company Number: US-US-EMD SERONO, INC.-7213215

PATIENT
  Age: 56 Year
  Sex: Female

DRUGS (4)
  1. REBIF [Suspect]
     Indication: MULTIPLE SCLEROSIS
     Route: 058
     Dates: start: 20130226
  2. REBIF [Suspect]
     Route: 058
  3. REBIF [Suspect]
     Route: 058
  4. IBUPROFEN [Concomitant]
     Indication: PREMEDICATION

REACTIONS (4)
  - Haemoglobin decreased [Recovering/Resolving]
  - Haematocrit decreased [Unknown]
  - Decubitus ulcer [Not Recovered/Not Resolved]
  - Menstruation irregular [Unknown]
